FAERS Safety Report 5238687-6 (Version None)
Quarter: 2007Q1

REPORT INFORMATION
  Report Type: 
  Country: None (occurrence: None)
  Receive Date: 20070215
  Receipt Date: 20070206
  Transmission Date: 20070707
  Serious: Yes (Other)
  Sender: FDA-Public Use
  Company Number: FR-PFIZER INC-2007011592

PATIENT
  Age: 41 Year
  Sex: Female

DRUGS (5)
  1. ATARAX [Suspect]
     Dosage: DAILY DOSE:125MG-FREQ:5 TIMES A DAY
     Route: 048
  2. LARGACTIL [Suspect]
     Dosage: DAILY DOSE:80MG-FREQ:4 TIMES A DAY
     Route: 048
  3. PROZAC [Suspect]
     Dosage: DAILY DOSE:20MG-FREQ:ONCE DAILY
     Route: 048
  4. TRANDATE [Suspect]
     Indication: COMPLICATION OF PREGNANCY
     Dosage: DAILY DOSE:400MG-FREQ:TWICE DAILY
     Route: 048
  5. NICARDIPINE HCL [Suspect]
     Indication: COMPLICATION OF PREGNANCY
     Dosage: DAILY DOSE:20MG-FREQ:ONCE DAILY
     Route: 048

REACTIONS (5)
  - CAESAREAN SECTION [None]
  - CERVIX DYSTOCIA [None]
  - DRUG EXPOSURE DURING PREGNANCY [None]
  - HEADACHE [None]
  - PREGNANCY INDUCED HYPERTENSION [None]
